FAERS Safety Report 16956065 (Version 1)
Quarter: 2019Q4

REPORT INFORMATION
  Report Type: Spontaneous
  Country: CN (occurrence: CN)
  Receive Date: 20191024
  Receipt Date: 20191024
  Transmission Date: 20200122
  Serious: Yes (Life-Threatening, Hospitalization, Other)
  Sender: FDA-Public Use
  Company Number: CN-ACCORD-158805

PATIENT
  Age: 11 Year
  Sex: Male

DRUGS (16)
  1. CYTARABINE/CYTARABINE HYDROCHLORIDE/CYTARABINE OCFOSFATE [Concomitant]
     Indication: ACUTE LYMPHOCYTIC LEUKAEMIA
     Dosage: FOR 12 TO 27 WEEKS
  2. MERCAPTOPURINE/MERCAPTOPURINE ANHYDROUS [Concomitant]
     Indication: ACUTE LYMPHOCYTIC LEUKAEMIA
     Route: 048
  3. METHOTREXATE. [Suspect]
     Active Substance: METHOTREXATE
     Indication: ACUTE LYMPHOCYTIC LEUKAEMIA
     Dosage: 4 GM/ SQ. MT.
  4. MERCAPTOPURINE/MERCAPTOPURINE ANHYDROUS [Concomitant]
     Indication: ACUTE LYMPHOCYTIC LEUKAEMIA
     Dosage: FOR 12 TO 27 WEEKS
  5. METHOTREXATE. [Suspect]
     Active Substance: METHOTREXATE
     Indication: ACUTE LYMPHOCYTIC LEUKAEMIA
     Dosage: 5 GM/MT SQ
  6. PEGASPARGASE [Concomitant]
     Active Substance: PEGASPARGASE
     Indication: ACUTE LYMPHOCYTIC LEUKAEMIA
  7. DAUNORUBICIN [Concomitant]
     Active Substance: DAUNORUBICIN
     Indication: ACUTE LYMPHOCYTIC LEUKAEMIA
  8. VINDESINE/VINDESINE SULFATE [Concomitant]
     Indication: ACUTE LYMPHOCYTIC LEUKAEMIA
     Dosage: FOR 12 TO 27 WEEKS
  9. DEXAMETHASONE. [Concomitant]
     Active Substance: DEXAMETHASONE
     Indication: ACUTE LYMPHOCYTIC LEUKAEMIA
     Dosage: GIVEN EVERY 4 WEEKS
     Route: 037
  10. CYCLOPHOSPHAMIDE/CYCLOPHOSPHAMIDE MONOHYDRATE [Concomitant]
     Indication: ACUTE LYMPHOCYTIC LEUKAEMIA
     Dosage: GIVEN EVERY 4 WEEKS
     Route: 037
  11. METHOTREXATE. [Suspect]
     Active Substance: METHOTREXATE
     Indication: ACUTE LYMPHOCYTIC LEUKAEMIA
     Dosage: 2 GM/ SQ. MT.
  12. METHOTREXATE. [Suspect]
     Active Substance: METHOTREXATE
     Indication: ACUTE LYMPHOCYTIC LEUKAEMIA
     Route: 048
  13. DASATINIB. [Suspect]
     Active Substance: DASATINIB
     Indication: ACUTE LYMPHOCYTIC LEUKAEMIA
  14. VINDESINE/VINDESINE SULFATE [Concomitant]
     Indication: ACUTE LYMPHOCYTIC LEUKAEMIA
     Dosage: GIVEN EVERY 4 WEEKS
     Route: 037
  15. DEXAMETHASONE. [Concomitant]
     Active Substance: DEXAMETHASONE
     Indication: ACUTE LYMPHOCYTIC LEUKAEMIA
     Dosage: FOR 12 TO 27 WEEKS
  16. CYTARABINE/CYTARABINE HYDROCHLORIDE/CYTARABINE OCFOSFATE [Concomitant]
     Indication: ACUTE LYMPHOCYTIC LEUKAEMIA
     Dosage: GIVEN EVERY 4 WEEKS
     Route: 037

REACTIONS (17)
  - Neurotoxicity [Recovered/Resolved]
  - Vomiting [Recovered/Resolved]
  - Hepatotoxicity [Recovered/Resolved]
  - Stomatitis [Recovered/Resolved]
  - Gastrointestinal toxicity [Recovered/Resolved]
  - Hepatic function abnormal [Recovered/Resolved]
  - Diarrhoea [Recovered/Resolved]
  - Bone marrow failure [Recovered/Resolved]
  - Haematoma [Recovered/Resolved]
  - Rash [Recovered/Resolved]
  - Haemorrhage intracranial [Recovered/Resolved with Sequelae]
  - Skin toxicity [Unknown]
  - Abdominal pain [Recovered/Resolved]
  - Cholecystitis [Recovered/Resolved]
  - Hemiparesis [Unknown]
  - Seizure [Recovered/Resolved]
  - Loss of consciousness [Recovered/Resolved]
